FAERS Safety Report 25123430 (Version 1)
Quarter: 2025Q1

REPORT INFORMATION
  Report Type: Spontaneous
  Country: US (occurrence: US)
  Receive Date: 20250326
  Receipt Date: 20250326
  Transmission Date: 20250409
  Serious: No
  Sender: GRIFOLS
  Company Number: US-IGSA-BIG0030055

PATIENT
  Sex: Male
  Weight: 100 kg

DRUGS (4)
  1. PROLASTIN-C LIQUID [Suspect]
     Active Substance: .ALPHA.1-PROTEINASE INHIBITOR HUMAN
     Indication: Alpha-1 antitrypsin deficiency
     Dosage: 11836 MILLIGRAM, Q.O.WK.
     Route: 042
  2. TUMS [Concomitant]
     Active Substance: CALCIUM CARBONATE
  3. IBUPROFEN [Concomitant]
     Active Substance: IBUPROFEN
  4. OMEPRAZOLE [Concomitant]
     Active Substance: OMEPRAZOLE

REACTIONS (8)
  - Cough [Unknown]
  - Dyspnoea exertional [Unknown]
  - Respiratory tract infection [Unknown]
  - Mobility decreased [Unknown]
  - Arthralgia [Unknown]
  - Muscular weakness [Unknown]
  - Dry skin [Unknown]
  - Acne [Unknown]
